FAERS Safety Report 24878573 (Version 1)
Quarter: 2025Q1

REPORT INFORMATION
  Report Type: Spontaneous
  Country: FR (occurrence: FR)
  Receive Date: 20250123
  Receipt Date: 20250123
  Transmission Date: 20250409
  Serious: Yes (Hospitalization)
  Sender: PFIZER
  Company Number: None

PATIENT
  Age: 59 Year
  Sex: Female

DRUGS (2)
  1. CLINDAMYCIN HYDROCHLORIDE [Suspect]
     Active Substance: CLINDAMYCIN HYDROCHLORIDE
     Indication: Antibiotic prophylaxis
     Dosage: 600 MG, EVERY 8 HOURS
     Route: 048
     Dates: start: 20241223, end: 20250101
  2. BACTRIM [Suspect]
     Active Substance: SULFAMETHOXAZOLE\TRIMETHOPRIM
     Indication: Antibiotic prophylaxis
     Dosage: 2 DF, EVERY 12 HOURS
     Route: 048
     Dates: start: 20241223, end: 20250101

REACTIONS (4)
  - Acute kidney injury [Recovering/Resolving]
  - Liver injury [Recovering/Resolving]
  - Neutropenia [Recovering/Resolving]
  - Blood creatine phosphokinase increased [Recovering/Resolving]

NARRATIVE: CASE EVENT DATE: 20250101
